FAERS Safety Report 7147956-4 (Version None)
Quarter: 2010Q4

REPORT INFORMATION
  Report Type: 
  Country: None (occurrence: None)
  Receive Date: 20101209
  Receipt Date: 20101129
  Transmission Date: 20110411
  Serious: Yes (Other)
  Sender: FDA-Public Use
  Company Number: US-JNJFOC-20101200838

PATIENT
  Sex: Female

DRUGS (9)
  1. REMICADE [Suspect]
     Indication: COLITIS ULCERATIVE
     Dosage: WAS ON INFLIXIMAB APPROX 2 YEARS
     Route: 042
  2. IRON [Concomitant]
  3. MULTI-VITAMINS [Concomitant]
  4. ALBUTEROL [Concomitant]
  5. BUSPIRONE HCL [Concomitant]
  6. LEVOTHYROXINE SODIUM [Concomitant]
  7. ARIMIDEX [Concomitant]
  8. ATENOLOL [Concomitant]
  9. NEXIUM [Concomitant]

REACTIONS (1)
  - ANAL CANCER [None]
